FAERS Safety Report 7796515-9 (Version None)
Quarter: 2011Q4

REPORT INFORMATION
  Report Type: 
  Country: None (occurrence: None)
  Receive Date: 20111005
  Receipt Date: 20110928
  Transmission Date: 20120403
  Serious: No
  Sender: FDA-Public Use
  Company Number: US-PFIZER INC-2011232012

PATIENT
  Sex: Female
  Weight: 98 kg

DRUGS (7)
  1. SYNTHROID [Concomitant]
     Indication: THYROID DISORDER
     Dosage: 1 UG, UNK
  2. NEURONTIN [Suspect]
     Indication: INTERVERTEBRAL DISC PROTRUSION
     Dosage: 600 MG, 2X/DAY
     Dates: start: 20110601
  3. FLECTOR [Suspect]
     Dosage: UNK, 1X/DAY
     Route: 062
     Dates: start: 20110301
  4. ULTRACET [Suspect]
     Indication: BACK PAIN
     Dosage: 37.5 MG, 3X/DAY
     Dates: start: 20110301
  5. ULTRACET [Suspect]
     Indication: INTERVERTEBRAL DISC PROTRUSION
  6. FLECTOR [Suspect]
     Dosage: UNK
     Dates: start: 20110301
  7. NEURONTIN [Suspect]
     Indication: BACK PAIN
     Dosage: 300 MG, 2X/DAY
     Dates: start: 20110301, end: 20110601

REACTIONS (5)
  - IMPAIRED DRIVING ABILITY [None]
  - DRUG INEFFECTIVE [None]
  - IMPAIRED WORK ABILITY [None]
  - DIZZINESS [None]
  - SLUGGISHNESS [None]
